FAERS Safety Report 25686080 (Version 1)
Quarter: 2025Q3

REPORT INFORMATION
  Report Type: Spontaneous
  Country: US (occurrence: None)
  Receive Date: 20250815
  Receipt Date: 20250815
  Transmission Date: 20251020
  Serious: Yes (Disabling)
  Sender: FDA-CTU
  Company Number: None

PATIENT
  Age: 41 Year
  Sex: Female
  Weight: 62.1 kg

DRUGS (3)
  1. SEMAGLUTIDE [Suspect]
     Active Substance: SEMAGLUTIDE
     Indication: Weight decreased
     Route: 050
     Dates: start: 20231130
  2. Birthcontrol [Concomitant]
  3. nutraful hair vitamins [Concomitant]

REACTIONS (7)
  - Alopecia [None]
  - Ear infection [None]
  - Lack of concomitant drug effect [None]
  - Deafness [None]
  - Temporomandibular pain and dysfunction syndrome [None]
  - Arthritis [None]
  - Ear discomfort [None]

NARRATIVE: CASE EVENT DATE: 20250401
